FAERS Safety Report 23874172 (Version 1)
Quarter: 2024Q2

REPORT INFORMATION
  Report Type: Spontaneous
  Country: AU (occurrence: AU)
  Receive Date: 20240520
  Receipt Date: 20240520
  Transmission Date: 20240716
  Serious: Yes (Life-Threatening, Hospitalization, Other)
  Sender: FDA-Public Use
  Company Number: AU-BRISTOL-MYERS SQUIBB COMPANY-2024-076280

PATIENT
  Age: 64 Year
  Sex: Female

DRUGS (2)
  1. NIVOLUMAB [Suspect]
     Active Substance: NIVOLUMAB
     Indication: Malignant melanoma
     Dosage: DOSE : UNAVAILABLE;     FREQ : UNAVAILABLE
  2. IPILIMUMAB [Suspect]
     Active Substance: IPILIMUMAB
     Indication: Malignant melanoma

REACTIONS (5)
  - Appendicitis [Recovered/Resolved]
  - COVID-19 [Recovered/Resolved]
  - Myasthenia gravis [Unknown]
  - Myocarditis [Unknown]
  - Myositis [Unknown]

NARRATIVE: CASE EVENT DATE: 20240101
